FAERS Safety Report 5819476-8 (Version None)
Quarter: 2008Q3

REPORT INFORMATION
  Report Type: 
  Country: None (occurrence: None)
  Receive Date: 20080723
  Receipt Date: 20080714
  Transmission Date: 20090109
  Serious: Yes (Hospitalization)
  Sender: FDA-Public Use
  Company Number: US-JNJFOC-20080504352

PATIENT
  Sex: Female
  Weight: 89.81 kg

DRUGS (7)
  1. INVEGA [Suspect]
     Indication: PARANOIA
     Route: 048
  2. ZOLOFT [Concomitant]
     Dosage: ^LOWERED DOSE^
     Route: 048
  3. ZOLOFT [Concomitant]
     Indication: MAJOR DEPRESSION
     Route: 048
  4. RISPERDAL [Concomitant]
     Indication: PARANOIA
  5. TEGRETOL [Concomitant]
     Indication: CONVULSION
  6. ATIVAN [Concomitant]
     Indication: ANXIETY
  7. DILANTIN [Concomitant]
     Indication: CONVULSION

REACTIONS (4)
  - ASTHENIA [None]
  - FEELING ABNORMAL [None]
  - HEADACHE [None]
  - HYPONATRAEMIA [None]
